FAERS Safety Report 6596165-6 (Version None)
Quarter: 2010Q1

REPORT INFORMATION
  Report Type: 
  Country: None (occurrence: None)
  Receive Date: 20100223
  Receipt Date: 20100216
  Transmission Date: 20100710
  Serious: Yes (Other)
  Sender: FDA-Public Use
  Company Number: US-SANOFI-AVENTIS-2010SA004697

PATIENT
  Age: 60 Year
  Sex: Male
  Weight: 98.2 kg

DRUGS (7)
  1. MULTAQ [Suspect]
     Indication: ATRIAL FIBRILLATION
     Route: 048
     Dates: start: 20100108
  2. MULTAQ [Suspect]
     Indication: TACHYCARDIA
     Route: 048
     Dates: start: 20100108
  3. COUMADIN [Concomitant]
  4. GLUCOPHAGE [Concomitant]
  5. COREG [Concomitant]
  6. PROZAC [Concomitant]
  7. LASIX [Concomitant]

REACTIONS (6)
  - ATRIAL FIBRILLATION [None]
  - BRADYCARDIA [None]
  - DIARRHOEA [None]
  - TACHYCARDIA [None]
  - VOMITING [None]
  - WEIGHT DECREASED [None]
